FAERS Safety Report 24448952 (Version 1)
Quarter: 2024Q4

REPORT INFORMATION
  Report Type: Spontaneous
  Country: FR (occurrence: FR)
  Receive Date: 20241017
  Receipt Date: 20241017
  Transmission Date: 20250115
  Serious: Yes (Other)
  Sender: ARGENX BVBA
  Company Number: FR-ARGENX-2024-ARGX-FR008944

PATIENT

DRUGS (1)
  1. VYVGART [Suspect]
     Active Substance: EFGARTIGIMOD ALFA-FCAB
     Indication: Myasthenia gravis
     Dosage: UNK
     Route: 042
     Dates: start: 20240620, end: 20240910

REACTIONS (2)
  - Immunoglobulins abnormal [Not Recovered/Not Resolved]
  - Infection susceptibility increased [Not Recovered/Not Resolved]

NARRATIVE: CASE EVENT DATE: 20240101
